FAERS Safety Report 16426602 (Version 1)
Quarter: 2019Q2

REPORT INFORMATION
  Report Type: Spontaneous
  Country: US (occurrence: US)
  Receive Date: 20190613
  Receipt Date: 20190613
  Transmission Date: 20190711
  Serious: No
  Sender: FDA-Public Use
  Company Number: US-BAUSCH-BL-2019-016386

PATIENT
  Sex: Male

DRUGS (1)
  1. BESIVANCE [Suspect]
     Active Substance: BESIFLOXACIN
     Indication: PRODUCT USED FOR UNKNOWN INDICATION
     Dosage: 07 YEARS AGO
     Route: 047
     Dates: start: 2012

REACTIONS (2)
  - Product deposit [Unknown]
  - Eye pain [Unknown]

NARRATIVE: CASE EVENT DATE: 2012
